FAERS Safety Report 10230801 (Version 1)
Quarter: 2014Q2

REPORT INFORMATION
  Report Type: Spontaneous
  Country: US (occurrence: US)
  Receive Date: 20140611
  Receipt Date: 20140611
  Transmission Date: 20141212
  Serious: No
  Sender: FDA-Public Use
  Company Number: US-ROXANE LABORATORIES, INC.-2014-RO-00871RO

PATIENT
  Age: 38 Year
  Sex: Female

DRUGS (1)
  1. BUPRENORPHINE HYDROCHLORIDE [Suspect]
     Indication: DRUG DEPENDENCE
     Dosage: 16 MG
     Route: 060

REACTIONS (2)
  - Feeling abnormal [Unknown]
  - Bruxism [Unknown]
